FAERS Safety Report 11209054 (Version 1)
Quarter: 2015Q2

REPORT INFORMATION
  Report Type: Spontaneous
  Country: IT (occurrence: IT)
  Receive Date: 20150622
  Receipt Date: 20150622
  Transmission Date: 20150821
  Serious: Yes (Hospitalization)
  Sender: FDA-Public Use
  Company Number: IT-BAYER-2015-362246

PATIENT
  Age: 74 Year
  Sex: Female

DRUGS (2)
  1. ACEQUIN [Concomitant]
     Dosage: UNK
  2. ULTRAVIST [Suspect]
     Active Substance: IOPROMIDE
     Indication: COMPUTERISED TOMOGRAM
     Dosage: 100 ML, ONCE
     Route: 042
     Dates: start: 20150616, end: 20150616

REACTIONS (5)
  - Skin oedema [Recovered/Resolved]
  - Pruritus [Recovered/Resolved]
  - Sensation of foreign body [Recovered/Resolved]
  - Dyspnoea [Recovered/Resolved]
  - Erythema [Recovered/Resolved]

NARRATIVE: CASE EVENT DATE: 20150616
